FAERS Safety Report 19032219 (Version 1)
Quarter: 2021Q1

REPORT INFORMATION
  Report Type: Spontaneous
  Country: FR (occurrence: FR)
  Receive Date: 20210319
  Receipt Date: 20210319
  Transmission Date: 20210420
  Serious: Yes (Hospitalization, Other)
  Sender: FDA-Public Use
  Company Number: FR-SA-2021SA094319

PATIENT
  Age: 69 Year
  Sex: Female

DRUGS (2)
  1. ENDOXAN [Suspect]
     Active Substance: CYCLOPHOSPHAMIDE
     Indication: BREAST CANCER
     Route: 042
     Dates: start: 20200504, end: 20200504
  2. TAXOTERE [Suspect]
     Active Substance: DOCETAXEL
     Indication: BREAST CANCER
     Route: 042
     Dates: start: 20200504, end: 20200504

REACTIONS (7)
  - Myalgia [Unknown]
  - Rash erythematous [Recovered/Resolved]
  - Asthenia [Unknown]
  - Febrile bone marrow aplasia [Recovered/Resolved]
  - Arthralgia [Unknown]
  - Cardiac failure [Recovering/Resolving]
  - Mucosal inflammation [Unknown]

NARRATIVE: CASE EVENT DATE: 20200507
